FAERS Safety Report 24291538 (Version 1)
Quarter: 2024Q3

REPORT INFORMATION
  Report Type: Spontaneous
  Country: US (occurrence: None)
  Receive Date: 20240906
  Receipt Date: 20240906
  Transmission Date: 20241016
  Serious: No
  Sender: DOMPE FARMACEUTICI
  Company Number: US-FARMAPROD-202308-202309-2809

PATIENT
  Age: 58 Year
  Sex: Female

DRUGS (5)
  1. OXERVATE [Suspect]
     Active Substance: CENEGERMIN-BKBJ
     Indication: Neurotrophic keratopathy
     Route: 047
     Dates: start: 20230907
  2. SYSTANE (HYPROMELLOSE 2910 (4000 MPA.S)) [Concomitant]
     Active Substance: HYPROMELLOSE 2910 (4000 MPA.S)
     Dosage: 0.3 %-0.4%
  3. ERYTHROMYCIN [Concomitant]
     Active Substance: ERYTHROMYCIN
  4. SYNTHROID [Concomitant]
     Active Substance: LEVOTHYROXINE SODIUM
  5. PLAQUENIL [Concomitant]
     Active Substance: HYDROXYCHLOROQUINE SULFATE

REACTIONS (2)
  - Eye pain [Recovering/Resolving]
  - Intentional product misuse [Unknown]

NARRATIVE: CASE EVENT DATE: 20230901
